FAERS Safety Report 5015423-X (Version None)
Quarter: 2006Q2

REPORT INFORMATION
  Report Type: 
  Country: None (occurrence: None)
  Receive Date: 20060601
  Receipt Date: 20060425
  Transmission Date: 20061013
  Serious: Yes (Other)
  Sender: FDA-Public Use
  Company Number: 2006AC00804

PATIENT
  Age: 24404 Day
  Sex: Male
  Weight: 69 kg

DRUGS (18)
  1. IRESSA [Suspect]
     Indication: NON-SMALL CELL LUNG CANCER
     Route: 048
     Dates: start: 20060316, end: 20060423
  2. GEMCITABINE [Concomitant]
     Indication: NON-SMALL CELL LUNG CANCER
     Dates: start: 20051031, end: 20051031
  3. GEMCITABINE [Concomitant]
     Dates: start: 20051107, end: 20051107
  4. GEMCITABINE [Concomitant]
     Dates: start: 20051130, end: 20051130
  5. GEMCITABINE [Concomitant]
     Dates: start: 20051228, end: 20051228
  6. GEMCITABINE [Concomitant]
     Dates: start: 20060104, end: 20060104
  7. GEMCITABINE [Concomitant]
     Dates: start: 20060201, end: 20060201
  8. GEMCITABINE [Concomitant]
     Dates: start: 20060208, end: 20060208
  9. CARBOPLATIN [Concomitant]
     Indication: NON-SMALL CELL LUNG CANCER
     Dates: start: 20051107, end: 20051107
  10. CARBOPLATIN [Concomitant]
     Dates: start: 20051130, end: 20051130
  11. CARBOPLATIN [Concomitant]
     Dates: start: 20060104, end: 20060104
  12. CARBOPLATIN [Concomitant]
     Dates: start: 20060208, end: 20060208
  13. MINOCYCLINE HCL [Concomitant]
     Indication: RASH
     Dates: start: 20060410, end: 20060420
  14. MINOCYCLINE HCL [Concomitant]
     Indication: ACNE
     Dates: start: 20060410, end: 20060420
  15. REDOMEX [Concomitant]
     Indication: ANTIDEPRESSANT THERAPY
     Dates: end: 20060419
  16. ACETAMINOPHEN [Concomitant]
     Indication: PAIN
  17. DIFFERINE CREME [Concomitant]
     Indication: ACNE
     Dates: start: 20060410, end: 20060419
  18. DIFFERINE CREME [Concomitant]
     Indication: RASH
     Dates: start: 20060410, end: 20060419

REACTIONS (1)
  - CHEMICAL CYSTITIS [None]
